FAERS Safety Report 5825060-2 (Version None)
Quarter: 2008Q3

REPORT INFORMATION
  Report Type: 
  Country: None (occurrence: None)
  Receive Date: 20080729
  Receipt Date: 20080725
  Transmission Date: 20090109
  Serious: Yes (Hospitalization)
  Sender: FDA-Public Use
  Company Number: DE-BRISTOL-MYERS SQUIBB COMPANY-14278006

PATIENT
  Age: 59 Year
  Sex: Female

DRUGS (3)
  1. ENDOXAN [Suspect]
     Indication: BREAST CANCER
     Dosage: TAKEN ON AUG 2007
     Dates: start: 20070901, end: 20070901
  2. TAXOL [Suspect]
     Indication: BREAST CANCER
     Dosage: TAKEN ON JUL2007
     Dates: start: 20070801, end: 20070801
  3. EPIRUBICIN [Suspect]
     Indication: BREAST CANCER
     Dosage: TAKEN ON MAY2007
     Dates: start: 20070601, end: 20070701

REACTIONS (1)
  - ACUTE MYELOID LEUKAEMIA [None]
